FAERS Safety Report 24691861 (Version 4)
Quarter: 2025Q1

REPORT INFORMATION
  Report Type: Spontaneous
  Country: US (occurrence: US)
  Receive Date: 20241203
  Receipt Date: 20250225
  Transmission Date: 20250408
  Serious: No
  Sender: PFIZER
  Company Number: US-PFIZER INC-202400310795

PATIENT
  Age: 13 Year
  Sex: Male

DRUGS (1)
  1. GENOTROPIN [Suspect]
     Active Substance: SOMATROPIN
     Dates: start: 20241101

REACTIONS (4)
  - Wrong technique in device usage process [Unknown]
  - Device information output issue [Unknown]
  - Device leakage [Unknown]
  - Device failure [Unknown]
